FAERS Safety Report 7166821-X (Version None)
Quarter: 2010Q4

REPORT INFORMATION
  Report Type: 
  Country: None (occurrence: None)
  Receive Date: 20101213
  Receipt Date: 20101213
  Transmission Date: 20110411
  Serious: Yes (Other)
  Sender: FDA-Public Use
  Company Number: None

PATIENT
  Age: 37 Year
  Sex: Male
  Weight: 136.0791 kg

DRUGS (2)
  1. CLINDAMYCIN [Suspect]
     Indication: INFECTION
     Dosage: 1 TABLET EVERY 6 HOURS PO
     Route: 048
     Dates: start: 20101207, end: 20101210
  2. CLINDAMYCIN [Suspect]
     Indication: PYREXIA
     Dosage: 1 TABLET EVERY 6 HOURS PO
     Route: 048
     Dates: start: 20101207, end: 20101210

REACTIONS (1)
  - HYPERSENSITIVITY [None]
